FAERS Safety Report 19199474 (Version 1)
Quarter: 2021Q2

REPORT INFORMATION
  Report Type: Spontaneous
  Country: US (occurrence: US)
  Receive Date: 20210430
  Receipt Date: 20210430
  Transmission Date: 20210717
  Serious: Yes (Other)
  Sender: FDA-Public Use
  Company Number: US-MACLEODS PHARMACEUTICALS US LTD-MAC2021030987

PATIENT

DRUGS (6)
  1. FENTANYL. [Concomitant]
     Active Substance: FENTANYL
     Dosage: UNK, 2 MCG/ML
     Route: 065
  2. LIDOCAINE. [Suspect]
     Active Substance: LIDOCAINE
     Dosage: 3 MILLILITER,LIDOCAINE 1.5%  TEST DOSE
     Route: 065
  3. FENTANYL. [Concomitant]
     Active Substance: FENTANYL
     Indication: PRODUCT USED FOR UNKNOWN INDICATION
     Dosage: 20 MICROGRAM
     Route: 037
  4. EPINEPHRINE. [Concomitant]
     Active Substance: EPINEPHRINE
     Indication: PRODUCT USED FOR UNKNOWN INDICATION
     Dosage: UNK, EPINEPHRINE 1:200,000 , TEST DOSE
     Route: 065
  5. ROPIVACAINE. [Concomitant]
     Active Substance: ROPIVACAINE HYDROCHLORIDE
     Indication: PRODUCT USED FOR UNKNOWN INDICATION
     Dosage: 7 MILLILITER, INFUSION A BOLUS OF 7ML ROPIVACAINE 0.2%
     Route: 065
  6. LIDOCAINE. [Suspect]
     Active Substance: LIDOCAINE
     Indication: PRODUCT USED FOR UNKNOWN INDICATION
     Dosage: UNK, BOLUS OF 5ML LIDOCAINE 1%
     Route: 008

REACTIONS (4)
  - Horner^s syndrome [Recovered/Resolved]
  - Maternal exposure during pregnancy [Unknown]
  - Sensorimotor disorder [Recovered/Resolved]
  - Facial paralysis [Recovered/Resolved]
